FAERS Safety Report 5042317-6 (Version None)
Quarter: 2006Q2

REPORT INFORMATION
  Report Type: 
  Country: None (occurrence: None)
  Receive Date: 20060601
  Receipt Date: 20060331
  Transmission Date: 20061013
  Serious: No
  Sender: FDA-Public Use
  Company Number: 2006PV011257

PATIENT
  Age: 51 Year
  Sex: Female

DRUGS (5)
  1. BYETTA [Suspect]
     Indication: DIABETES MELLITUS
     Dosage: 5  MCG; BID; SC
     Route: 058
     Dates: start: 20060201
  2. METFORMIN [Concomitant]
  3. GLIMEPIRIDE [Concomitant]
  4. AMARYL [Concomitant]
  5. AVANDIA [Concomitant]

REACTIONS (1)
  - BLOOD GLUCOSE INCREASED [None]
